FAERS Safety Report 11575928 (Version 1)
Quarter: 2015Q3

REPORT INFORMATION
  Report Type: Spontaneous
  Country: US (occurrence: US)
  Receive Date: 20150930
  Receipt Date: 20150930
  Transmission Date: 20151125
  Serious: Yes (Hospitalization)
  Sender: FDA-Public Use
  Company Number: US-SMITH AND NEPHEW, INC-2015SMT00349

PATIENT
  Age: 45 Year
  Sex: Male
  Weight: 102.4 kg

DRUGS (4)
  1. REGRANEX [Suspect]
     Active Substance: BECAPLERMIN
     Indication: DIABETIC ULCER
     Dosage: UNK
     Route: 061
     Dates: start: 20150911, end: 20150915
  2. OMEPRAZOLE. [Concomitant]
     Active Substance: OMEPRAZOLE
     Indication: DYSPEPSIA
     Dosage: UNK
  3. 2 UNSPECIFIED HIGH BLOOD PRESSURE MEDICATIONS [Concomitant]
     Indication: HYPERTENSION
     Dosage: UNK
  4. BINDERS FOR DIALYSIS (UNSPECIFIED) [Concomitant]
     Dosage: UNK

REACTIONS (4)
  - Hypoaesthesia [Recovered/Resolved]
  - Cellulitis [Unknown]
  - Pyrexia [Recovered/Resolved]
  - Burning sensation [Recovered/Resolved]

NARRATIVE: CASE EVENT DATE: 201508
